FAERS Safety Report 20712555 (Version 1)
Quarter: 2022Q2

REPORT INFORMATION
  Report Type: Spontaneous
  Country: DE (occurrence: DE)
  Receive Date: 20220415
  Receipt Date: 20220415
  Transmission Date: 20220720
  Serious: Yes (Other)
  Sender: FDA-Public Use
  Company Number: DE-PEI-202200093874

PATIENT
  Age: 91 Year
  Sex: Female
  Weight: 70 kg

DRUGS (1)
  1. ATORVASTATIN [Suspect]
     Active Substance: ATORVASTATIN
     Dosage: STRENGTH : 40 MG, UNIT DOSE :1 DF
     Dates: start: 20211027, end: 20220125

REACTIONS (1)
  - Hepatitis cholestatic [Recovered/Resolved]

NARRATIVE: CASE EVENT DATE: 20220119
